FAERS Safety Report 6369773-5 (Version None)
Quarter: 2009Q3

REPORT INFORMATION
  Report Type: 
  Country: None (occurrence: None)
  Receive Date: 20090923
  Receipt Date: 20090915
  Transmission Date: 20100115
  Serious: Yes (Hospitalization, Other)
  Sender: FDA-Public Use
  Company Number: US-ASTRAZENECA-2009SE13679

PATIENT
  Age: 37 Year
  Sex: Male
  Weight: 127 kg

DRUGS (5)
  1. SEROQUEL [Suspect]
     Indication: BIPOLAR DISORDER
     Route: 048
     Dates: start: 20041103, end: 20061129
  2. SEROQUEL [Suspect]
     Indication: DEPRESSION
     Route: 048
     Dates: start: 20041103, end: 20061129
  3. CLOZARIL [Concomitant]
     Dates: start: 20001117
  4. HALDOL [Concomitant]
     Dates: start: 20001219
  5. ZYPREXA [Concomitant]
     Dates: start: 20001219

REACTIONS (4)
  - PANCREATITIS [None]
  - TOE AMPUTATION [None]
  - TYPE 2 DIABETES MELLITUS [None]
  - VASCULAR OPERATION [None]
